FAERS Safety Report 5159978-3 (Version None)
Quarter: 2006Q4

REPORT INFORMATION
  Report Type: 
  Country: None (occurrence: None)
  Receive Date: 20061129
  Receipt Date: 20061114
  Transmission Date: 20070319
  Serious: Yes (Other)
  Sender: FDA-Public Use
  Company Number: US-AMGEN-KDL200235

PATIENT

DRUGS (2)
  1. ENBREL [Suspect]
     Indication: DRUG USE FOR UNKNOWN INDICATION
     Dates: start: 20060101
  2. METHOTREXATE [Concomitant]
     Dates: start: 20050101

REACTIONS (3)
  - AUTOIMMUNE DISORDER [None]
  - LIVER DISORDER [None]
  - TRANSAMINASES INCREASED [None]
